FAERS Safety Report 5620265-8 (Version None)
Quarter: 2008Q1

REPORT INFORMATION
  Report Type: 
  Country: None (occurrence: None)
  Receive Date: 20080208
  Receipt Date: 20080207
  Transmission Date: 20080703
  Serious: Yes (Death)
  Sender: FDA-Public Use
  Company Number: B0506939A

PATIENT
  Age: 67 Year
  Sex: Male
  Weight: 105 kg

DRUGS (6)
  1. AVANDAMET [Suspect]
     Route: 048
     Dates: start: 20050721, end: 20071126
  2. BENDROFLUMETHIAZIDE [Concomitant]
     Indication: HYPERTENSION
     Route: 048
     Dates: start: 20040715
  3. RAMIPRIL [Concomitant]
     Indication: HYPERTENSION
     Route: 048
     Dates: start: 20050418
  4. WARFARIN SODIUM [Concomitant]
     Indication: ATRIAL FIBRILLATION
     Route: 048
     Dates: start: 20060406
  5. SIMVASTATIN [Concomitant]
     Route: 048
     Dates: start: 20030801
  6. ORLISTAT [Concomitant]
     Indication: OBESITY
     Route: 048
     Dates: start: 20070822

REACTIONS (1)
  - MYOCARDIAL ISCHAEMIA [None]
